FAERS Safety Report 4733756-9 (Version None)
Quarter: 2005Q3

REPORT INFORMATION
  Report Type: 
  Country: None (occurrence: None)
  Receive Date: 20050729
  Receipt Date: 20050712
  Transmission Date: 20060218
  Serious: Yes (Death, Other)
  Sender: FDA-Public Use
  Company Number: 2005-BP-11992RO

PATIENT
  Age: 65 Year
  Sex: Male

DRUGS (4)
  1. AZATHIOPRINE [Suspect]
     Indication: PROPHYLAXIS AGAINST TRANSPLANT REJECTION
     Dosage: 125 MG
  2. PREDNISONE [Suspect]
     Indication: PROPHYLAXIS AGAINST TRANSPLANT REJECTION
     Dosage: 90 MG (1 IN 8 HR)
  3. AMPHOTERICIN B [Suspect]
     Indication: ALTERNARIA INFECTION
  4. AMPHOTERICIN B [Suspect]
     Indication: FUNGAL SKIN INFECTION

REACTIONS (6)
  - ALTERNARIA INFECTION [None]
  - CARDIAC FAILURE [None]
  - CELLULITIS [None]
  - FUNGAL SKIN INFECTION [None]
  - RASH PAPULAR [None]
  - SKIN ULCER [None]
